FAERS Safety Report 7148240-5 (Version None)
Quarter: 2010Q4

REPORT INFORMATION
  Report Type: 
  Country: None (occurrence: None)
  Receive Date: 20101124
  Receipt Date: 20101108
  Transmission Date: 20110411
  Serious: Yes (Life-Threatening, Hospitalization)
  Sender: FDA-Public Use
  Company Number: 1000016673

PATIENT
  Age: 22 Year
  Sex: Female

DRUGS (3)
  1. LEXAPRO [Suspect]
     Dates: start: 20080101, end: 20100101
  2. LEXAPRO [Suspect]
     Dates: start: 20100101
  3. LAMOTRIGINE [Concomitant]

REACTIONS (2)
  - CARDIO-RESPIRATORY ARREST [None]
  - VENTRICULAR ARRHYTHMIA [None]
